FAERS Safety Report 6968633-6 (Version None)
Quarter: 2010Q3

REPORT INFORMATION
  Report Type: 
  Country: None (occurrence: None)
  Receive Date: 20100901
  Receipt Date: 20100824
  Transmission Date: 20110219
  Serious: Yes (Hospitalization)
  Sender: FDA-Public Use
  Company Number: PI-04985

PATIENT
  Age: 10 Year
  Sex: Male

DRUGS (2)
  1. CHLORAPREP ONE-STEP [Suspect]
     Indication: PREOPERATIVE CARE
     Dosage: 1.75 ML, MULTIPLE, TOPICAL
     Route: 061
     Dates: start: 20100801
  2. CHEMOTHERAPY [Concomitant]

REACTIONS (7)
  - APPLICATION SITE ERYTHEMA [None]
  - APPLICATION SITE EXFOLIATION [None]
  - APPLICATION SITE INFECTION [None]
  - APPLICATION SITE PAPULES [None]
  - APPLICATION SITE VESICLES [None]
  - PYREXIA [None]
  - STAPHYLOCOCCAL SKIN INFECTION [None]
